FAERS Safety Report 10243695 (Version 1)
Quarter: 2014Q2

REPORT INFORMATION
  Report Type: Spontaneous
  Country: NO (occurrence: None)
  Receive Date: 20140616
  Receipt Date: 20140616
  Transmission Date: 20141212
  Serious: Yes (Death, Other)
  Sender: FDA-Public Use
  Company Number: FK201402246

PATIENT
  Age: 46 Year
  Sex: Male

DRUGS (11)
  1. CYTARABINE (CYTARABINE) [Suspect]
     Indication: PRECURSOR T-LYMPHOBLASTIC LYMPHOMA/LEUKAEMIA
     Route: 037
  2. MERCAPTOPURINE (MERCAPTOPURINE) [Suspect]
     Indication: PRECURSOR T-LYMPHOBLASTIC LYMPHOMA/LEUKAEMIA
     Route: 042
  3. CYCLOPHOSPHAMIDE (CYCLOPHOSPHAMIDE) [Suspect]
     Indication: PRECURSOR T-LYMPHOBLASTIC LYMPHOMA/LEUKAEMIA
     Route: 042
  4. G-CSF (GRANULOCUTE COLONY STIMULATING FACTOR) (GRANULOCYTE COLONY STIMULATING FACTOR) [Suspect]
     Indication: PERIPHERAL BLOOD STEM CELL APHERESIS
  5. L-ASPARAGINASE (ASPARAGINASE) (ASPARAGINASE) [Suspect]
     Indication: PRECURSOR T-LYMPHOBLASTIC LYMPHOMA/LEUKAEMIA
     Route: 042
  6. METHOTREXATE (METHOTREXATE) [Suspect]
     Indication: PRECURSOR T-LYMPHOBLASTIC LYMPHOMA/LEUKAEMIA
     Route: 037
  7. DOXORUBICIN (DOXORUBICIN) [Suspect]
     Indication: PRECURSOR T-LYMPHOBLASTIC LYMPHOMA/LEUKAEMIA
     Route: 042
  8. THIOGUANINE (THIOGUANINE) [Suspect]
     Indication: PRECURSOR T-LYMPHOBLASTIC LYMPHOMA/LEUKAEMIA
  9. VINCRISTINE SULFATE (VINCRISTINE SULFATE) [Suspect]
     Indication: PRECURSOR T-LYMPHOBLASTIC LYMPHOMA/LEUKAEMIA
     Route: 042
  10. PREDNISONE (PREDNISONE) [Suspect]
     Indication: PRECURSOR T-LYMPHOBLASTIC LYMPHOMA/LEUKAEMIA
     Route: 037
  11. DAUNORUBICIN (DAUNORUBICIN) [Suspect]
     Indication: PRECURSOR T-LYMPHOBLASTIC LYMPHOMA/LEUKAEMIA
     Route: 042

REACTIONS (3)
  - Multi-organ failure [None]
  - Febrile neutropenia [None]
  - Haematotoxicity [None]
